FAERS Safety Report 4643023-X (Version None)
Quarter: 2005Q2

REPORT INFORMATION
  Report Type: 
  Country: None (occurrence: None)
  Receive Date: 20050421
  Receipt Date: 20050408
  Transmission Date: 20051028
  Serious: Yes (Hospitalization)
  Sender: FDA-Public Use
  Company Number: 200510965GDS

PATIENT
  Age: 52 Year

DRUGS (8)
  1. ACETYL SALICYLIC ACID USP BAT [Suspect]
     Dosage: 100 MG, TOTAL DAILY
  2. DICLOFENAC SODIUM [Suspect]
     Indication: ARTHRALGIA
  3. DEPOT-INSULIN [Concomitant]
  4. LISINOPRIL [Concomitant]
  5. SPIRONOLACTONE [Concomitant]
  6. BISOPROLOL FUMARATE [Concomitant]
  7. SIMVASTATIN [Concomitant]
  8. ESOMEPRAZOLE [Concomitant]

REACTIONS (8)
  - ABDOMINAL DISCOMFORT [None]
  - CARDIAC FAILURE [None]
  - DRUG INEFFECTIVE [None]
  - DRUG RESISTANCE [None]
  - GASTRITIS EROSIVE [None]
  - GENERAL PHYSICAL HEALTH DETERIORATION [None]
  - RENAL FAILURE ACUTE [None]
  - SOMNOLENCE [None]
